FAERS Safety Report 17478744 (Version 9)
Quarter: 2022Q1

REPORT INFORMATION
  Report Type: Spontaneous
  Country: GB (occurrence: GB)
  Receive Date: 20200228
  Receipt Date: 20220308
  Transmission Date: 20220423
  Serious: Yes (Hospitalization, Other)
  Sender: FDA-Public Use
  Company Number: NVSC2020GB056009

PATIENT
  Age: 68 Year
  Sex: Male

DRUGS (34)
  1. SACUBITRIL\VALSARTAN [Suspect]
     Active Substance: SACUBITRIL\VALSARTAN
     Indication: Product used for unknown indication
     Dosage: 2 DOSAGE FORM, BID 49/51 MG (ONCE IN 12 HOURS)
     Route: 065
  2. SACUBITRIL\VALSARTAN [Suspect]
     Active Substance: SACUBITRIL\VALSARTAN
     Dosage: 1 DOSAGE FORM,  BID  24/26 MG (ONCE IN 12 HOURS) (DENTAL GEL)
     Route: 065
  3. SACUBITRIL\VALSARTAN [Suspect]
     Active Substance: SACUBITRIL\VALSARTAN
     Dosage: 2 DOSAGE FORM, BID
     Route: 065
  4. SACUBITRIL\VALSARTAN [Suspect]
     Active Substance: SACUBITRIL\VALSARTAN
     Dosage: 2 DOSAGE FORM (24/26 MG) ONCE IN 12 HOURS, BID
     Route: 065
  5. SACUBITRIL\VALSARTAN [Suspect]
     Active Substance: SACUBITRIL\VALSARTAN
     Dosage: 4 DOSAGE FORM, QD, (4 DOSAGE FORM, ONCE A DAY)
     Route: 065
  6. BISOPROLOL [Suspect]
     Active Substance: BISOPROLOL
     Indication: Product used for unknown indication
     Dosage: UNK
     Route: 065
  7. BISOPROLOL [Suspect]
     Active Substance: BISOPROLOL
     Dosage: 7.5 MG
     Route: 065
  8. BISOPROLOL [Suspect]
     Active Substance: BISOPROLOL
     Dosage: 25 MG, QD
     Route: 065
  9. BISOPROLOL [Suspect]
     Active Substance: BISOPROLOL
     Dosage: 2.5 MG, BID
     Route: 065
  10. BISOPROLOL [Suspect]
     Active Substance: BISOPROLOL
     Dosage: 2.5 DOSAGE FORM
     Route: 065
  11. BISOPROLOL [Suspect]
     Active Substance: BISOPROLOL
     Dosage: UNK, BID
     Route: 065
  12. BISOPROLOL [Suspect]
     Active Substance: BISOPROLOL
     Dosage: 5 MG, QD
     Route: 065
  13. RAMIPRIL [Suspect]
     Active Substance: RAMIPRIL
     Indication: Product used for unknown indication
     Dosage: UNK
     Route: 065
  14. RAMIPRIL [Suspect]
     Active Substance: RAMIPRIL
     Dosage: 2.5 MG, BID
     Route: 065
  15. RAMIPRIL [Suspect]
     Active Substance: RAMIPRIL
     Dosage: 5 MG, QD
     Route: 065
  16. EPLERENONE [Suspect]
     Active Substance: EPLERENONE
     Indication: Product used for unknown indication
     Dosage: UNK
     Route: 065
  17. EPLERENONE [Suspect]
     Active Substance: EPLERENONE
     Dosage: 25 MG (GARGEL, TABLET FOR SOLUTION)
     Route: 065
  18. ISOSORBIDE MONONITRATE [Suspect]
     Active Substance: ISOSORBIDE MONONITRATE
     Indication: Product used for unknown indication
     Dosage: UNK
     Route: 065
  19. ISOSORBIDE MONONITRATE [Suspect]
     Active Substance: ISOSORBIDE MONONITRATE
     Dosage: 25 MG, QD
     Route: 065
  20. IVABRADINE [Suspect]
     Active Substance: IVABRADINE
     Indication: Product used for unknown indication
     Dosage: UNK, BID
     Route: 065
  21. IVABRADINE [Suspect]
     Active Substance: IVABRADINE
     Dosage: 2.5 MG, BID (ONCE IN 12 HOUR)
     Route: 065
  22. IVABRADINE [Suspect]
     Active Substance: IVABRADINE
     Dosage: 5 MG, QD
     Route: 065
  23. IVABRADINE [Suspect]
     Active Substance: IVABRADINE
     Dosage: UNK, QD
     Route: 065
  24. BUMETANIDE [Concomitant]
     Active Substance: BUMETANIDE
     Indication: Product used for unknown indication
     Dosage: 3 OT, BID
     Route: 065
  25. BUMETANIDE [Concomitant]
     Active Substance: BUMETANIDE
     Dosage: 1 DOSAGE FORM  (2/1 MG)
     Route: 065
  26. BUMETANIDE [Concomitant]
     Active Substance: BUMETANIDE
     Dosage: 1 DOSAGE FORM (3/2 MG)
     Route: 065
  27. BUMETANIDE [Concomitant]
     Active Substance: BUMETANIDE
     Dosage: 3 MG, BID (ONCE IN 12 HOURS)
     Route: 065
  28. BUMETANIDE [Concomitant]
     Active Substance: BUMETANIDE
     Dosage: 2.5 MG, Q3W
     Route: 065
  29. BUMETANIDE [Concomitant]
     Active Substance: BUMETANIDE
     Dosage: 1 DOSAGE FORM, UNKNOWN
     Route: 065
  30. BUMETANIDE [Concomitant]
     Active Substance: BUMETANIDE
     Dosage: UNK
     Route: 065
  31. METOLAZONE [Concomitant]
     Active Substance: METOLAZONE
     Indication: Product used for unknown indication
     Dosage: 2.5 MG, Q3W (EVERY 3 WEEKS)
     Route: 065
  32. METOLAZONE [Concomitant]
     Active Substance: METOLAZONE
     Dosage: 2.5 OT, Q3W, EVERY 3 WEEKS
     Route: 065
  33. METOLAZONE [Concomitant]
     Active Substance: METOLAZONE
     Dosage: 2.5 MG, Q3W (EVERY 3 WEEKS)
     Route: 065
  34. METOLAZONE [Concomitant]
     Active Substance: METOLAZONE
     Dosage: 3 DF, QW
     Route: 065

REACTIONS (8)
  - Venous pressure jugular increased [Unknown]
  - Oedema peripheral [Unknown]
  - Glomerular filtration rate decreased [Unknown]
  - Blood potassium increased [Unknown]
  - Sinus bradycardia [Unknown]
  - Blood pressure systolic decreased [Unknown]
  - Blood pressure decreased [Unknown]
  - Dizziness [Unknown]

NARRATIVE: CASE EVENT DATE: 20200101
